FAERS Safety Report 4313141-4 (Version None)
Quarter: 2004Q1

REPORT INFORMATION
  Report Type: 
  Country: None (occurrence: None)
  Receive Date: 20040304
  Receipt Date: 20040223
  Transmission Date: 20041129
  Serious: Yes (Hospitalization)
  Sender: FDA-Public Use
  Company Number: US-JNJFOC-20040205153

PATIENT
  Age: 35 Year
  Sex: Female

DRUGS (11)
  1. INFLIXIMAB (INFLIXIMAB, RECOMBINANT) LYOPHILIZED POWDER [Suspect]
     Indication: RHEUMATOID ARTHRITIS
     Dosage: INTRAVENOUS
     Route: 042
     Dates: start: 20001115
  2. ARTHROTEC [Concomitant]
  3. KLONOPIN [Concomitant]
  4. ISOSORBIDE [Concomitant]
  5. METHOTREXATE [Concomitant]
  6. ORTHO TRI-CYCLINE (NORGESTIMATE/ETHINYL ESTRADIOL) [Concomitant]
  7. PLAQUENIL [Concomitant]
  8. PREDNISONE [Concomitant]
  9. ULTRAM [Concomitant]
  10. NORCO (VICODIN) [Concomitant]
  11. MIRAPEX [Concomitant]

REACTIONS (13)
  - BAND NEUTROPHIL PERCENTAGE INCREASED [None]
  - BLOOD CREATINE PHOSPHOKINASE INCREASED [None]
  - COUGH [None]
  - DYSPNOEA [None]
  - HAEMATURIA [None]
  - LEUKOCYTURIA [None]
  - NITRITE URINE [None]
  - PAIN IN EXTREMITY [None]
  - PLEURITIC PAIN [None]
  - PROTEINURIA [None]
  - PYREXIA [None]
  - URINE KETONE BODY PRESENT [None]
  - WHITE BLOOD CELL COUNT DECREASED [None]
